FAERS Safety Report 23142515 (Version 1)
Quarter: 2023Q4

REPORT INFORMATION
  Report Type: Spontaneous
  Country: HU (occurrence: None)
  Receive Date: 20231103
  Receipt Date: 20231103
  Transmission Date: 20240110
  Serious: Yes (Death, Hospitalization)
  Sender: FDA-Public Use
  Company Number: 2023A247084

PATIENT
  Age: 74 Year
  Sex: Female
  Weight: 55 kg

DRUGS (3)
  1. LYNPARZA [Suspect]
     Active Substance: OLAPARIB
     Indication: Ovarian cancer
     Route: 048
     Dates: start: 202304, end: 202309
  2. DALNESSA [Concomitant]
     Indication: Hypertension
     Dosage: 5MG/4MG
     Route: 048
  3. ELIQUIS [Concomitant]
     Active Substance: APIXABAN
     Indication: Thrombosis prophylaxis
     Route: 048

REACTIONS (11)
  - Gait disturbance [Recovered/Resolved with Sequelae]
  - Pain in extremity [Recovered/Resolved with Sequelae]
  - Dizziness [Fatal]
  - Anaemia [Recovering/Resolving]
  - Vision blurred [Recovered/Resolved with Sequelae]
  - Polyneuropathy [Fatal]
  - Headache [Fatal]
  - Nausea [Recovering/Resolving]
  - Gastrooesophageal reflux disease [Recovered/Resolved with Sequelae]
  - Diplopia [Recovered/Resolved with Sequelae]
  - Pruritus [Recovering/Resolving]

NARRATIVE: CASE EVENT DATE: 20230401
